FAERS Safety Report 9184963 (Version 1)
Quarter: 2013Q1

REPORT INFORMATION
  Report Type: Spontaneous
  Country: US (occurrence: US)
  Receive Date: 20130325
  Receipt Date: 20130325
  Transmission Date: 20140127
  Serious: Yes (Death)
  Sender: FDA-Public Use
  Company Number: US-BRISTOL-MYERS SQUIBB COMPANY-16548778

PATIENT
  Age: 31 Year
  Sex: Female

DRUGS (1)
  1. ERBITUX [Suspect]
     Indication: METASTASES TO LUNG
     Dates: start: 20110603, end: 20110716

REACTIONS (1)
  - Death [Fatal]
